FAERS Safety Report 12566102 (Version 1)
Quarter: 2016Q3

REPORT INFORMATION
  Report Type: Spontaneous
  Country: US (occurrence: US)
  Receive Date: 20160718
  Receipt Date: 20160718
  Transmission Date: 20161109
  Serious: No
  Sender: FDA-Public Use
  Company Number: US-GLAXOSMITHKLINE-US2016101626

PATIENT
  Sex: Female

DRUGS (2)
  1. VOLTAREN [Suspect]
     Active Substance: DICLOFENAC SODIUM
     Indication: SPINAL PAIN
     Dosage: UNK
  2. VOLTAREN [Suspect]
     Active Substance: DICLOFENAC SODIUM
     Indication: BACK PAIN

REACTIONS (8)
  - Balance disorder [Unknown]
  - Condition aggravated [Unknown]
  - Drug administered at inappropriate site [Unknown]
  - Nausea [Unknown]
  - Off label use [Unknown]
  - Incorrect dose administered [Unknown]
  - Vision blurred [Unknown]
  - Disturbance in attention [Unknown]
